FAERS Safety Report 5028880-X (Version None)
Quarter: 2006Q2

REPORT INFORMATION
  Report Type: 
  Country: None (occurrence: None)
  Receive Date: 20060501
  Receipt Date: 20060213
  Transmission Date: 20061013
  Serious: No
  Sender: FDA-Public Use
  Company Number: 200611547US

PATIENT
  Age: 35 Year
  Sex: Female
  Weight: 86.36 kg

DRUGS (3)
  1. KETEK [Suspect]
     Indication: SINUSITIS
     Dosage: 1600 MG QD PO
     Route: 048
     Dates: start: 20060206, end: 20060210
  2. MEDROL [Concomitant]
  3. PSEUDOEPHEDRINE SULFATE (GUIAFED PD) [Concomitant]

REACTIONS (4)
  - DIZZINESS [None]
  - LIVER FUNCTION TEST ABNORMAL [None]
  - VISION BLURRED [None]
  - WHITE BLOOD CELL COUNT INCREASED [None]
